FAERS Safety Report 5707536-1 (Version None)
Quarter: 2008Q2

REPORT INFORMATION
  Report Type: 
  Country: None (occurrence: None)
  Receive Date: 20080416
  Receipt Date: 20080404
  Transmission Date: 20081010
  Serious: Yes (Other)
  Sender: FDA-Public Use
  Company Number: US-PFIZER INC-2008004914

PATIENT
  Age: 35 Year
  Sex: Female
  Weight: 74.8 kg

DRUGS (3)
  1. CHANTIX [Suspect]
     Indication: SMOKING CESSATION THERAPY
     Dates: start: 20071101, end: 20071201
  2. ELAVIL [Concomitant]
     Dosage: DAILY DOSE:25MG-FREQ:FREQUENCY: EVERY BEDTIME
  3. ORAL CONTRACEPTIVE NOS [Concomitant]
     Route: 048
     Dates: start: 20071121

REACTIONS (7)
  - AGITATION [None]
  - DEPRESSION [None]
  - DRUG WITHDRAWAL SYNDROME [None]
  - HEADACHE [None]
  - INSOMNIA [None]
  - PSYCHOTIC DISORDER [None]
  - SUICIDAL IDEATION [None]
